FAERS Safety Report 9639739 (Version 1)
Quarter: 2013Q4

REPORT INFORMATION
  Report Type: Spontaneous
  Country: US (occurrence: None)
  Receive Date: 20131021
  Receipt Date: 20131021
  Transmission Date: 20140711
  Serious: Yes (Disabling)
  Sender: FDA-Public Use
  Company Number: None

PATIENT
  Age: 11 Year
  Sex: Female
  Weight: 34.02 kg

DRUGS (1)
  1. METHYLPHENIDATE ER [Suspect]
     Indication: ATTENTION DEFICIT/HYPERACTIVITY DISORDER
     Route: 048
     Dates: start: 20130921, end: 20131018

REACTIONS (9)
  - Memory impairment [None]
  - Confusional state [None]
  - Distractibility [None]
  - Drug ineffective [None]
  - Educational problem [None]
  - Thinking abnormal [None]
  - Product quality issue [None]
  - Product substitution issue [None]
  - Product formulation issue [None]
